FAERS Safety Report 23588611 (Version 2)
Quarter: 2024Q4

REPORT INFORMATION
  Report Type: Report from Study
  Country: DE (occurrence: DE)
  Receive Date: 20240302
  Receipt Date: 20241211
  Transmission Date: 20250115
  Serious: Yes (Hospitalization)
  Sender: AMGEN
  Company Number: DE-AMGEN-DEUNI2023204321

PATIENT
  Age: 56 Year
  Sex: Female
  Weight: 70 kg

DRUGS (12)
  1. TRASTUZUMAB [Suspect]
     Active Substance: TRASTUZUMAB
     Indication: Breast cancer
     Dosage: 567 MILLIGRAM/DATE OF LAST APPLICATION PRIOR EVENT 04/AUG/2023 LAST DOSE PRIOR EVENT 567 MG
     Route: 065
     Dates: start: 20230804
  2. TRASTUZUMAB [Suspect]
     Active Substance: TRASTUZUMAB
     Dosage: 420 MILLIGRAM, CYCLICAL, DATE OF LAST APPLICATION PRIOR EVENT 04/AUG/2023LAST DOSE PRIOR EVENT 567 M
     Route: 065
     Dates: start: 20230823
  3. PERJETA [Suspect]
     Active Substance: PERTUZUMAB
     Indication: Breast cancer
     Dosage: 840 MILLIGRAM/DATE OF LAST APPLICATION PRIOR EVENT 04/AUG/2023LAST DOSE PRIOR EVENT 840 MG
     Route: 065
     Dates: start: 20230804
  4. PERJETA [Suspect]
     Active Substance: PERTUZUMAB
     Dosage: 420 MILLIGRAM, CYCLICAL, DATE OF LAST APPLICATION PRIOR EVENT 04/AUG/2023,DATE OF LAST APPLICATION P
     Route: 065
     Dates: start: 20230823
  5. PACLITAXEL [Suspect]
     Active Substance: PACLITAXEL
     Indication: Breast cancer
     Dosage: 138 MILLIGRAM, CYCLICAL/DATE OF LAST APPLICATION PRIOR EVENT 04/AUG/2023LAST DOSE PRIOR EVENT 138MG,
     Route: 065
     Dates: start: 20230804
  6. PACLITAXEL [Suspect]
     Active Substance: PACLITAXEL
     Dosage: 143.2 MILLIGRAM
     Route: 065
  7. CARBOPLATIN [Suspect]
     Active Substance: CARBOPLATIN
     Indication: Breast cancer
     Dosage: 470 MILLIGRAM, CYCLICAL/DATE OF LAST APPLICATION PRIOR EVENT 04/AUG/2023LAST DOSE PRIOR EVENT 470 MG
     Route: 065
     Dates: start: 20230804
  8. CARBOPLATIN [Suspect]
     Active Substance: CARBOPLATIN
     Dosage: 485 MILLIGRAM
     Route: 065
  9. CARBOPLATIN [Suspect]
     Active Substance: CARBOPLATIN
     Dosage: 530 MILLIGRAM
     Route: 065
     Dates: start: 20230913
  10. LACTIC ACID, DL-\SODIUM LACTATE [Concomitant]
     Active Substance: LACTIC ACID, DL-\SODIUM LACTATE
     Dosage: UNK
     Route: 065
     Dates: start: 202309, end: 202312
  11. Aldiamed mouth gel [Concomitant]
     Route: 048
     Dates: start: 202309
  12. LOPERAMIDE [Concomitant]
     Active Substance: LOPERAMIDE
     Route: 048
     Dates: start: 202311, end: 202407

REACTIONS (3)
  - Vertigo [Recovered/Resolved]
  - Diarrhoea [Recovered/Resolved]
  - Fatigue [Recovered/Resolved]

NARRATIVE: CASE EVENT DATE: 20230913
